FAERS Safety Report 23713379 (Version 2)
Quarter: 2024Q2

REPORT INFORMATION
  Report Type: Report from Study
  Country: BR (occurrence: BR)
  Receive Date: 20240405
  Receipt Date: 20240422
  Transmission Date: 20240716
  Serious: Yes (Other)
  Sender: FDA-Public Use
  Company Number: BR-JNJFOC-20240383321

PATIENT
  Age: 67 Year
  Sex: Female
  Weight: 77 kg

DRUGS (2)
  1. SIMPONI [Suspect]
     Active Substance: GOLIMUMAB
     Indication: Rheumatoid arthritis
     Route: 058
  2. SIMPONI [Suspect]
     Active Substance: GOLIMUMAB

REACTIONS (3)
  - Retinal detachment [Unknown]
  - Influenza [Unknown]
  - Insomnia [Unknown]

NARRATIVE: CASE EVENT DATE: 20240323
